FAERS Safety Report 11158091 (Version 4)
Quarter: 2015Q3

REPORT INFORMATION
  Report Type: Spontaneous
  Country: US (occurrence: US)
  Receive Date: 20150603
  Receipt Date: 20150716
  Transmission Date: 20151125
  Serious: Yes (Other)
  Sender: FDA-Public Use
  Company Number: US-ASTRAZENECA-2013SE93136

PATIENT
  Age: 22757 Day
  Sex: Female

DRUGS (19)
  1. METHIMAZOLE. [Concomitant]
     Active Substance: METHIMAZOLE
     Route: 065
  2. JANUMET [Concomitant]
     Active Substance: METFORMIN HYDROCHLORIDE\SITAGLIPTIN PHOSPHATE
     Dosage: 50/500 TWICE A DAY
     Route: 065
     Dates: start: 20110427
  3. DILAUDID [Concomitant]
     Active Substance: HYDROMORPHONE HYDROCHLORIDE
     Dosage: 0.5- 1 MG
     Dates: start: 20111121
  4. ALLEGRA [Concomitant]
     Active Substance: FEXOFENADINE HYDROCHLORIDE
     Route: 065
     Dates: start: 20040914
  5. BYETTA [Suspect]
     Active Substance: EXENATIDE
     Indication: TYPE 2 DIABETES MELLITUS
     Route: 065
     Dates: start: 20100831
  6. METFORMIN [Concomitant]
     Active Substance: METFORMIN HYDROCHLORIDE
     Route: 065
     Dates: start: 20100831
  7. VITAMIN D [Concomitant]
     Active Substance: CHOLECALCIFEROL
     Dosage: 3000 UNLTS TWICE A DAV
     Route: 065
  8. ZOFRAN [Concomitant]
     Active Substance: ONDANSETRON HYDROCHLORIDE
     Dosage: 4 MG/ 2 ML EVERY 4 HOURS AS NEEDED.
     Dates: start: 20111121
  9. NORCO [Concomitant]
     Active Substance: ACETAMINOPHEN\HYDROCODONE BITARTRATE
     Route: 065
  10. TEQUIN [Concomitant]
     Active Substance: GATIFLOXACIN
     Route: 065
     Dates: start: 20011114
  11. DOXYCYCLINE. [Concomitant]
     Active Substance: DOXYCYCLINE
     Route: 065
  12. DIOVAN [Concomitant]
     Active Substance: VALSARTAN
     Route: 065
     Dates: start: 20110425
  13. LOVAZA [Concomitant]
     Active Substance: OMEGA-3-ACID ETHYL ESTERS
     Route: 065
  14. METHOCARBAMOL. [Concomitant]
     Active Substance: METHOCARBAMOL
     Route: 065
     Dates: start: 20100819
  15. SYNTHROID [Concomitant]
     Active Substance: LEVOTHYROXINE SODIUM
  16. VIOXX [Concomitant]
     Active Substance: ROFECOXIB
     Route: 065
     Dates: start: 20020110
  17. ESTRACE [Concomitant]
     Active Substance: ESTRADIOL
     Route: 065
     Dates: start: 20001231
  18. HYOSCYAMINE. [Concomitant]
     Active Substance: HYOSCYAMINE
     Route: 065
  19. BYETTA [Suspect]
     Active Substance: EXENATIDE
     Indication: TYPE 2 DIABETES MELLITUS
     Dosage: LAST DOSE ON 2008
     Route: 065
     Dates: start: 2007

REACTIONS (4)
  - Thyroid cancer [Unknown]
  - Toxic nodular goitre [Unknown]
  - Meningioma [Unknown]
  - Hypothyroidism [Unknown]

NARRATIVE: CASE EVENT DATE: 20110805
